FAERS Safety Report 4338456-5 (Version None)
Quarter: 2004Q2

REPORT INFORMATION
  Report Type: 
  Country: None (occurrence: None)
  Receive Date: 20040409
  Receipt Date: 20040325
  Transmission Date: 20050107
  Serious: Yes (Hospitalization)
  Sender: FDA-Public Use
  Company Number: 2003-NL-00085NL

PATIENT
  Age: 76 Year
  Sex: Female

DRUGS (1)
  1. MICARDIS [Suspect]
     Indication: HYPERTENSION
     Dosage: 80 MG (40 MG, 2 IN 1 D) PO
     Route: 048
     Dates: start: 20030527

REACTIONS (3)
  - ACCIDENT [None]
  - CONTUSION [None]
  - HYPOTENSION [None]
